FAERS Safety Report 7133629-0 (Version None)
Quarter: 2010Q4

REPORT INFORMATION
  Report Type: 
  Country: None (occurrence: None)
  Receive Date: 20101202
  Receipt Date: 20101125
  Transmission Date: 20110411
  Serious: Yes (Other)
  Sender: FDA-Public Use
  Company Number: JP-GENENTECH-310442

PATIENT
  Age: 82 Year
  Sex: Male

DRUGS (3)
  1. ACTIVASE [Suspect]
     Indication: EMBOLIC STROKE
     Dosage: 32.5 ML, QD
     Route: 042
     Dates: start: 20101116, end: 20101116
  2. RADICUT [Suspect]
     Indication: EMBOLIC STROKE
     Dosage: 30 MG, BID
     Dates: start: 20101116
  3. HEPARIN SODIUM [Concomitant]
     Indication: PRODUCT USED FOR UNKNOWN INDICATION
     Dosage: UNK
     Dates: start: 20101117

REACTIONS (2)
  - OLIGURIA [None]
  - RENAL IMPAIRMENT [None]
